FAERS Safety Report 7812254-X (Version None)
Quarter: 2011Q4

REPORT INFORMATION
  Report Type: 
  Country: None (occurrence: None)
  Receive Date: 20111011
  Receipt Date: 20110927
  Transmission Date: 20120403
  Serious: Yes (Life-Threatening)
  Sender: FDA-Public Use
  Company Number: DSJ-2011-20525

PATIENT
  Age: 79 Year
  Sex: Female
  Weight: 64 kg

DRUGS (2)
  1. OLMESARTAN MEDOXOMIL [Suspect]
     Indication: ESSENTIAL HYPERTENSION
     Dosage: 10 MG (10 MG, 1 IN 1 D), PER ORAL
     Route: 048
     Dates: start: 20110122, end: 20110915
  2. BASEN OD (VOGLIBOSE) (TABLET) (VOGLIBOSE) [Suspect]
     Indication: DIABETES MELLITUS
     Dosage: 0.9 MG (0.3 MG, 3 IN 1 D), PER ORAL
     Route: 048
     Dates: start: 20080306

REACTIONS (10)
  - MALAISE [None]
  - HYPERKALAEMIA [None]
  - EATING DISORDER [None]
  - DEPRESSED LEVEL OF CONSCIOUSNESS [None]
  - BLOOD PRESSURE IMMEASURABLE [None]
  - FALL [None]
  - CARDIO-RESPIRATORY ARREST [None]
  - VENTRICULAR FIBRILLATION [None]
  - HYPOAESTHESIA [None]
  - HAEMODIALYSIS [None]
